FAERS Safety Report 7574432-7 (Version None)
Quarter: 2011Q2

REPORT INFORMATION
  Report Type: 
  Country: None (occurrence: None)
  Receive Date: 20110627
  Receipt Date: 20110515
  Transmission Date: 20111010
  Serious: No
  Sender: FDA-Public Use
  Company Number: US-BAYER-2011-043876

PATIENT
  Sex: Female

DRUGS (2)
  1. ALEVE (CAPLET) [Suspect]
     Indication: TOOTHACHE
     Dosage: DAILY DOSE 660 MG
     Route: 048
  2. TYLENOL W/ CODEINE [Concomitant]
     Indication: TOOTHACHE
     Dosage: 2 TABLESPOONS

REACTIONS (1)
  - TOOTHACHE [None]
